FAERS Safety Report 8570638-9 (Version None)
Quarter: 2012Q3

REPORT INFORMATION
  Report Type: 
  Country: None (occurrence: None)
  Receive Date: 20120804
  Receipt Date: 20120730
  Transmission Date: 20120928
  Serious: No
  Sender: FDA-Public Use
  Company Number: US-ASTRAZENECA-2012SE54246

PATIENT
  Age: 51 Year
  Sex: Female

DRUGS (3)
  1. SEROQUEL XR [Suspect]
     Indication: ANXIETY
     Route: 048
  2. SEROQUEL XR [Suspect]
     Indication: DEPRESSION
     Route: 048
  3. SEROQUEL XR [Suspect]
     Indication: TACHYPHRENIA
     Route: 048

REACTIONS (4)
  - DRUG DOSE OMISSION [None]
  - TACHYPHRENIA [None]
  - ADVERSE EVENT [None]
  - INSOMNIA [None]
